FAERS Safety Report 23971745 (Version 2)
Quarter: 2024Q2

REPORT INFORMATION
  Report Type: Spontaneous
  Country: US (occurrence: US)
  Receive Date: 20240613
  Receipt Date: 20240625
  Transmission Date: 20240716
  Serious: Yes (Other)
  Sender: FDA-Public Use
  Company Number: US-UCBSA-2024030018

PATIENT
  Sex: Female

DRUGS (6)
  1. KEPPRA [Suspect]
     Active Substance: LEVETIRACETAM
     Indication: Epilepsy
     Dosage: 500 MILLIGRAM, 3X/DAY (TID)
     Dates: start: 202201
  2. KEPPRA [Suspect]
     Active Substance: LEVETIRACETAM
     Dosage: 750 MILLIGRAM, 3X/DAY (TID)
  3. KEPPRA [Suspect]
     Active Substance: LEVETIRACETAM
     Dosage: 1000 MILLIGRAM, 3X/DAY (TID)
  4. KEPPRA [Suspect]
     Active Substance: LEVETIRACETAM
     Dosage: 1500 MILLIGRAM, 3X/DAY (TID)
  5. KEPPRA [Suspect]
     Active Substance: LEVETIRACETAM
     Dosage: 1750 MILLIGRAM, 3X/DAY (TID)
     Dates: start: 20221210
  6. KEPPRA [Suspect]
     Active Substance: LEVETIRACETAM
     Dosage: 100 MILLIGRAM, 3X/DAY (TID)
     Dates: start: 202404, end: 20240426

REACTIONS (13)
  - Seizure [Recovering/Resolving]
  - Multiple fractures [Recovering/Resolving]
  - Arterial injury [Recovering/Resolving]
  - Loss of consciousness [Recovering/Resolving]
  - Internal injury [Recovering/Resolving]
  - Illness [Not Recovered/Not Resolved]
  - Impaired work ability [Not Recovered/Not Resolved]
  - Overdose [Unknown]
  - Drug ineffective [Unknown]
  - Somnolence [Unknown]
  - Road traffic accident [Recovering/Resolving]
  - Feeling abnormal [Recovering/Resolving]
  - Inappropriate schedule of product administration [Unknown]

NARRATIVE: CASE EVENT DATE: 20220101
